FAERS Safety Report 12180075 (Version 1)
Quarter: 2016Q1

REPORT INFORMATION
  Report Type: Spontaneous
  Country: US (occurrence: US)
  Receive Date: 20160315
  Receipt Date: 20160315
  Transmission Date: 20160526
  Serious: No
  Sender: FDA-Public Use
  Company Number: US-PFIZER INC-2016122869

PATIENT

DRUGS (2)
  1. ZOLOFT [Suspect]
     Active Substance: SERTRALINE HYDROCHLORIDE
     Dosage: UNK
  2. RESTORIL [Interacting]
     Active Substance: TEMAZEPAM
     Indication: INSOMNIA
     Dosage: UNK

REACTIONS (2)
  - Drug ineffective [Unknown]
  - Inhibitory drug interaction [Unknown]
